FAERS Safety Report 9424192 (Version 3)
Quarter: 2013Q3

REPORT INFORMATION
  Report Type: Spontaneous
  Country: AT (occurrence: AT)
  Receive Date: 20130729
  Receipt Date: 20130830
  Transmission Date: 20140515
  Serious: Yes (Death, Hospitalization, Other)
  Sender: FDA-Public Use
  Company Number: AT-AMGEN-AUTSP2013051092

PATIENT
  Sex: Male

DRUGS (2)
  1. NEUPOGEN [Suspect]
     Indication: NEUTROPENIA
     Dosage: UNK
     Route: 065
  2. ZARZIO [Concomitant]
     Dosage: UNK

REACTIONS (3)
  - Sepsis [Fatal]
  - Alveolar proteinosis [Unknown]
  - Pneumonia [Unknown]
